FAERS Safety Report 9805889 (Version 1)
Quarter: 2014Q1

REPORT INFORMATION
  Report Type: Spontaneous
  Country: US (occurrence: US)
  Receive Date: 20140109
  Receipt Date: 20140109
  Transmission Date: 20141002
  Serious: No
  Sender: FDA-Public Use
  Company Number: US-TEVA-455115USA

PATIENT
  Sex: Male

DRUGS (2)
  1. QNASL [Suspect]
  2. UNSPECIFED MEDICATIONS [Suspect]

REACTIONS (1)
  - Dry mouth [Not Recovered/Not Resolved]
